FAERS Safety Report 21985929 (Version 1)
Quarter: 2023Q1

REPORT INFORMATION
  Report Type: Spontaneous
  Country: US (occurrence: None)
  Receive Date: 20230211
  Receipt Date: 20230211
  Transmission Date: 20230418
  Serious: Yes (Disabling)
  Sender: FDA-Public Use
  Company Number: None

PATIENT
  Age: 89 Year
  Sex: Female
  Weight: 49.5 kg

DRUGS (1)
  1. RYBELSUS [Suspect]
     Active Substance: SEMAGLUTIDE
     Dosage: FREQUENCY : DAILY;?
     Route: 048

REACTIONS (3)
  - Peripheral swelling [None]
  - Gait inability [None]
  - Impaired self-care [None]

NARRATIVE: CASE EVENT DATE: 20221219
